FAERS Safety Report 7981486-2 (Version None)
Quarter: 2011Q4

REPORT INFORMATION
  Report Type: 
  Country: None (occurrence: None)
  Receive Date: 20111215
  Receipt Date: 20111209
  Transmission Date: 20120403
  Serious: Yes (Congenital Anomaly, Other)
  Sender: FDA-Public Use
  Company Number: US-PFIZER INC-2011300960

PATIENT
  Sex: Female
  Weight: 2.9 kg

DRUGS (2)
  1. EFFEXOR XR [Suspect]
     Dosage: 112.5 MG, UNK
     Route: 064
     Dates: start: 20090101, end: 20090101
  2. EFFEXOR XR [Suspect]
     Dosage: 112.5 MG, UNK
     Route: 064
     Dates: start: 20100101, end: 20100101

REACTIONS (8)
  - MATERNAL EXPOSURE TIMING UNSPECIFIED [None]
  - CARDIOMEGALY [None]
  - CONGENITAL PULMONARY VALVE DISORDER [None]
  - CYANOSIS [None]
  - ATRIAL SEPTAL DEFECT [None]
  - RIGHT VENTRICULAR HYPERTROPHY [None]
  - WEIGHT GAIN POOR [None]
  - BRONCHIOLITIS [None]
